FAERS Safety Report 7314281-8 (Version None)
Quarter: 2011Q1

REPORT INFORMATION
  Report Type: 
  Country: None (occurrence: None)
  Receive Date: 20110215
  Receipt Date: 20110131
  Transmission Date: 20110831
  Serious: Yes (Hospitalization)
  Sender: FDA-Public Use
  Company Number: AUR-APL-2011-00395

PATIENT
  Age: 55 Year
  Sex: Female

DRUGS (4)
  1. METOPROLOL [Suspect]
     Indication: HYPERTENSION
  2. ASPIRIN [Suspect]
     Indication: CARDIAC DISORDER
     Dosage: 81MG-DAILY
  3. AMLODIPINE BESYLATE [Suspect]
  4. PROTONIX [Suspect]
     Indication: GASTROOESOPHAGEAL REFLUX DISEASE
     Dosage: 40MG-DAILY-ORAL
     Route: 048
     Dates: start: 20091105

REACTIONS (2)
  - PRODUCT SUBSTITUTION ISSUE [None]
  - CHEST PAIN [None]
